FAERS Safety Report 7251068-9 (Version None)
Quarter: 2011Q1

REPORT INFORMATION
  Report Type: 
  Country: None (occurrence: None)
  Receive Date: 20110128
  Receipt Date: 20110113
  Transmission Date: 20110831
  Serious: Yes (Other)
  Sender: FDA-Public Use
  Company Number: US-BAYER-US-2006-006373

PATIENT
  Sex: Female
  Weight: 68 kg

DRUGS (33)
  1. ESTRADIOL [Suspect]
     Indication: PAIN IN EXTREMITY
     Dosage: UNK, UNK
     Dates: start: 19940101, end: 19950101
  2. FLONASE [Concomitant]
     Dates: start: 20010101
  3. TEQUIN [Concomitant]
     Indication: PNEUMONIA
     Dosage: 400 GM/D5W 200 ML
     Route: 042
     Dates: start: 20010124
  4. TAMIFLU [Concomitant]
     Indication: DYSPNOEA
     Dosage: 150 MG (DAILY DOSE), BID,
     Dates: start: 20010119
  5. MORFIN [Concomitant]
     Indication: HYPERTENSION
     Dosage: UNK, UNK
     Dates: start: 19930101, end: 20020101
  6. UNIVASC [Concomitant]
  7. OCUFLOX [Concomitant]
     Dates: start: 20020101
  8. LORATADINE [Concomitant]
     Dates: start: 20010122
  9. RANITIDINE [Concomitant]
     Indication: DYSPEPSIA
     Dosage: 150 MG (DAILY DOSE), HS, ORAL
     Route: 048
     Dates: start: 20010122
  10. TESSALON [Concomitant]
     Indication: COUGH
     Dosage: Q4H PRN
     Route: 048
     Dates: start: 20010122
  11. SIMVASTATIN [Concomitant]
     Indication: BLOOD CHOLESTEROL INCREASED
     Dosage: 20 MG (DAILY DOSE), QD, ORAL
     Route: 048
  12. MEDROXYPROGESTERONE ACETATE [Suspect]
     Indication: MENOPAUSAL SYMPTOMS
     Dosage: 2.5 MG TABLETS
     Dates: start: 19880101, end: 20010101
  13. PREMARIN [Suspect]
     Indication: MENOPAUSAL SYMPTOMS
     Dosage: 0.625 MG (DAILY DOSE), QD, ORAL
     Route: 048
     Dates: start: 19880101
  14. ACETAMINOPHEN AND HYDROCODONE BITARTRATE [Concomitant]
     Dosage: 5/500
     Dates: start: 20020101
  15. ATROVENT [Concomitant]
     Dates: start: 20020101
  16. LEVOXYL [Concomitant]
     Dates: start: 20010122
  17. PREDNISONE [Concomitant]
     Dates: start: 20020101
  18. PREDNISONE [Concomitant]
     Dosage: 40 MG (DAILY DOSE), BID,
     Dates: start: 20010101
  19. COMBIVENT [Concomitant]
     Dosage: 2 PUFFS 4X/DAY INHALER
     Route: 050
     Dates: start: 20010101
  20. CLIMARA [Suspect]
     Indication: MENOPAUSAL SYMPTOMS
     Dosage: .05 MG/D, CONT
     Route: 062
     Dates: start: 19951018, end: 19980101
  21. ACETYLSALICYLIC ACID SRT [Concomitant]
     Indication: ANTICOAGULANT THERAPY
     Dosage: UNK, UNK
     Dates: start: 19930101
  22. ACULAR [Concomitant]
     Dates: start: 20020101
  23. ZOLOFT [Concomitant]
     Indication: DEPRESSION
     Dosage: 50 MG (DAILY DOSE), QD, ORAL
     Route: 048
     Dates: start: 19940829
  24. WELLBUTRIN SR [Concomitant]
     Dates: start: 20020101
  25. PRED FORTE [Concomitant]
     Dates: start: 20020101
  26. LEVOTHYROXINE SODIUM [Concomitant]
     Indication: HYPOTHYROIDISM
     Dosage: UNK, UNK
     Dates: start: 19820101
  27. CLONIDINE [Concomitant]
     Indication: HYPERTENSION
     Dosage: UNK, UNK
     Dates: start: 20020101, end: 20050101
  28. ALLEGRA [Concomitant]
     Dates: start: 20010122
  29. DETROL LA [Concomitant]
  30. SOLU-MEDROL [Concomitant]
     Indication: PNEUMONIA
  31. ESTROGENS CONJUGATED W/MEDROXYPROGEST ACETATE [Suspect]
     Indication: MENOPAUSAL SYMPTOMS
     Dosage: 0.625/2.5 QAM
     Dates: start: 19980101, end: 20020101
  32. LOSARTAN POTASSIUM [Concomitant]
     Indication: HYPERTENSION
     Dosage: UNK, UNK
     Dates: start: 20050101
  33. DICLOFENAC [Concomitant]
     Indication: BACK PAIN
     Dosage: 150 MG (DAILY DOSE), TID,

REACTIONS (4)
  - BREAST CANCER FEMALE [None]
  - MUSCULOSKELETAL CHEST PAIN [None]
  - BREAST CYST [None]
  - POSTOPERATIVE WOUND COMPLICATION [None]
